FAERS Safety Report 9165421 (Version 3)
Quarter: 2013Q1

REPORT INFORMATION
  Report Type: Spontaneous
  Country: IT (occurrence: None)
  Receive Date: 20130228
  Receipt Date: 20130314
  Transmission Date: 20140127
  Serious: Yes (Other)
  Sender: FDA-Public Use
  Company Number: AUR-APL-2013-01430

PATIENT
  Age: 58 Year
  Sex: Female

DRUGS (4)
  1. CITALOPRAM [Suspect]
     Indication: MAJOR DEPRESSION
     Route: 048
  2. CITALOPRAM [Suspect]
     Indication: DISEASE RECURRENCE
     Route: 048
  3. CITALOPRAM [Suspect]
     Route: 048
  4. LEVOTHYROXINE (LEVOTHYROXINE) [Concomitant]

REACTIONS (9)
  - Pathological gambling [None]
  - Fracture [None]
  - Tremor [None]
  - Dizziness [None]
  - Sleep disorder [None]
  - Anxiety [None]
  - Hypochondriasis [None]
  - Road traffic accident [None]
  - Somatisation disorder [None]
